FAERS Safety Report 21375254 (Version 10)
Quarter: 2022Q4

REPORT INFORMATION
  Report Type: Report from Study
  Country: FR (occurrence: None)
  Receive Date: 20220926
  Receipt Date: 20221214
  Transmission Date: 20230113
  Serious: Yes (Hospitalization)
  Sender: FDA-Public Use
  Company Number: FR-Eisai Medical Research-EC-2022-124414

PATIENT
  Age: 71 Year
  Sex: Male
  Weight: 82 kg

DRUGS (10)
  1. LENVATINIB [Suspect]
     Active Substance: LENVATINIB
     Indication: Hormone-refractory prostate cancer
     Dosage: STARTING DOSE 20 MG, FLUCTUATED DOSE
     Route: 048
     Dates: start: 20220510, end: 20220917
  2. LENVATINIB [Suspect]
     Active Substance: LENVATINIB
     Indication: Prostate cancer metastatic
  3. PEMBROLIZUMAB [Suspect]
     Active Substance: PEMBROLIZUMAB
     Indication: Hormone-refractory prostate cancer
     Route: 042
     Dates: start: 20220510, end: 20220826
  4. PEMBROLIZUMAB [Suspect]
     Active Substance: PEMBROLIZUMAB
     Indication: Prostate cancer metastatic
  5. ELIQUIS [Suspect]
     Active Substance: APIXABAN
     Indication: Acute coronary syndrome
     Dates: start: 20190604, end: 20220919
  6. ELIQUIS [Suspect]
     Active Substance: APIXABAN
     Indication: Infarction
  7. ENANTONE LP [Concomitant]
     Active Substance: LEUPROLIDE ACETATE
     Dates: start: 20131115
  8. LIPTRUZET [Concomitant]
     Active Substance: ATORVASTATIN CALCIUM\EZETIMIBE
     Dates: start: 20190604
  9. BISOPROLOL FUMARATE [Concomitant]
     Active Substance: BISOPROLOL FUMARATE
     Dates: start: 20220603
  10. RAMIPRIL [Concomitant]
     Active Substance: RAMIPRIL
     Dates: start: 20220810, end: 20220928

REACTIONS (1)
  - Posterior reversible encephalopathy syndrome [Recovered/Resolved]

NARRATIVE: CASE EVENT DATE: 20220917
